FAERS Safety Report 20430881 (Version 1)
Quarter: 2022Q1

REPORT INFORMATION
  Report Type: Spontaneous
  Country: US (occurrence: US)
  Receive Date: 20220204
  Receipt Date: 20220204
  Transmission Date: 20220423
  Serious: No
  Sender: FDA-Public Use
  Company Number: US-OYSTER POINT PHARMA, INC.-2021OYS00077

PATIENT
  Sex: Female

DRUGS (1)
  1. TYRVAYA [Suspect]
     Active Substance: VARENICLINE TARTRATE
     Dosage: UNK
     Dates: start: 2021

REACTIONS (4)
  - Ocular hyperaemia [Not Recovered/Not Resolved]
  - Product dose omission issue [Unknown]
  - Sneezing [Unknown]
  - Throat irritation [Unknown]

NARRATIVE: CASE EVENT DATE: 20210101
